FAERS Safety Report 5772236-9 (Version None)
Quarter: 2008Q2

REPORT INFORMATION
  Report Type: 
  Country: None (occurrence: None)
  Receive Date: 20080613
  Receipt Date: 20080602
  Transmission Date: 20081010
  Serious: Yes (Hospitalization)
  Sender: FDA-Public Use
  Company Number: PHHY2008JP04953

PATIENT
  Age: 58 Year
  Sex: Female
  Weight: 70 kg

DRUGS (7)
  1. GLEEVEC [Suspect]
     Indication: RECTAL CANCER
     Route: 048
     Dates: start: 20080101, end: 20080326
  2. LASIX [Concomitant]
     Indication: OEDEMA
     Dosage: 20 MG, UNK
     Route: 048
     Dates: start: 20080101, end: 20080326
  3. OLMETEC [Concomitant]
  4. NORVASC [Concomitant]
  5. ACTOS [Concomitant]
  6. MELBIN [Concomitant]
  7. CRESTOR [Concomitant]

REACTIONS (5)
  - AGEUSIA [None]
  - DYSGEUSIA [None]
  - GASTROOESOPHAGEAL REFLUX DISEASE [None]
  - NAUSEA [None]
  - SURGERY [None]
